FAERS Safety Report 14341312 (Version 1)
Quarter: 2018Q1

REPORT INFORMATION
  Report Type: Spontaneous
  Country: AU (occurrence: AU)
  Receive Date: 20180102
  Receipt Date: 20180102
  Transmission Date: 20180509
  Serious: Yes (Hospitalization)
  Sender: FDA-Public Use
  Company Number: AU-APOTEX-2017AP023661

PATIENT
  Age: 80 Year
  Sex: Female

DRUGS (2)
  1. APO-SOTALOL [Concomitant]
     Active Substance: SOTALOL HYDROCHLORIDE
     Indication: ARRHYTHMIA
     Dosage: HALF A TABLET DAILY
     Route: 048
  2. APO-IRBESARTAN [Suspect]
     Active Substance: IRBESARTAN
     Indication: HYPERTENSION
     Dosage: 0.5 DF, DAILY
     Route: 048

REACTIONS (4)
  - Gingival bleeding [Unknown]
  - Epistaxis [Unknown]
  - Hypertension [Unknown]
  - Fall [Unknown]
